FAERS Safety Report 5114465-3 (Version None)
Quarter: 2006Q3

REPORT INFORMATION
  Report Type: 
  Country: None (occurrence: None)
  Receive Date: 20060802
  Receipt Date: 20060406
  Transmission Date: 20061208
  Serious: No
  Sender: FDA-Public Use
  Company Number: 200612914US

PATIENT
  Age: 50 Year
  Sex: Female
  Weight: 118.1 kg

DRUGS (8)
  1. KETEK [Suspect]
     Indication: BRONCHITIS
     Dosage: 400 FIRST DOSE MG PO
     Route: 048
     Dates: start: 20060321
  2. KETEK [Suspect]
     Indication: BRONCHITIS
     Dosage: (1) 400 MG PO
     Route: 048
     Dates: start: 20060323
  3. TOPROL-XL [Concomitant]
  4. HYDROCHLOROTHIAZIDE [Concomitant]
  5. IRBESARTAN (AVALIDE) [Concomitant]
  6. METFORMIN HYDROCHLORIDE [Concomitant]
  7. ROSULVASTATIN (CRESTOR) [Concomitant]
  8. ESTROGEN NOS [Concomitant]

REACTIONS (4)
  - BURNING SENSATION [None]
  - CHEST PAIN [None]
  - DYSPNOEA [None]
  - FATIGUE [None]
